FAERS Safety Report 4620978-0 (Version None)
Quarter: 2005Q1

REPORT INFORMATION
  Report Type: 
  Country: None (occurrence: None)
  Receive Date: 20050315
  Receipt Date: 20050209
  Transmission Date: 20050727
  Serious: No
  Sender: FDA-Public Use
  Company Number: US-YAMANOUCHI-YPA20050071

PATIENT
  Age: 69 Year
  Sex: Male
  Weight: 93.441 kg

DRUGS (1)
  1. VESICARE [Suspect]
     Indication: NOCTURIA
     Dosage: 5 MG DAILY PO
     Route: 048
     Dates: start: 20050128, end: 20050205

REACTIONS (1)
  - OEDEMA PERIPHERAL [None]
